FAERS Safety Report 9393512 (Version 1)
Quarter: 2013Q3

REPORT INFORMATION
  Report Type: Spontaneous
  Country: US (occurrence: None)
  Receive Date: 20130709
  Receipt Date: 20130709
  Transmission Date: 20140515
  Serious: No
  Sender: FDA-Public Use
  Company Number: None

PATIENT
  Age: 34 Year
  Sex: Male

DRUGS (2)
  1. ZYPREXA [Suspect]
     Dosage: SEVERAL MONTHS
     Route: 048
  2. THORAZINE [Suspect]
     Dosage: 100MG, EVRY 4HR AS NEEDED, PO
     Route: 048

REACTIONS (1)
  - Tremor [None]
